FAERS Safety Report 9483794 (Version 1)
Quarter: 2013Q3

REPORT INFORMATION
  Report Type: Spontaneous
  Country: IT (occurrence: IT)
  Receive Date: 20130828
  Receipt Date: 20130828
  Transmission Date: 20140515
  Serious: Yes (Hospitalization)
  Sender: FDA-Public Use
  Company Number: IT-TEVA-428695ISR

PATIENT
  Age: 75 Year
  Sex: Female

DRUGS (7)
  1. FLUOROURACILE TEVA [Suspect]
     Indication: COLON CANCER
     Dosage: 3890 MG CYCLICAL
     Route: 042
     Dates: start: 20121210, end: 20130731
  2. IRINOTECAN [Suspect]
     Indication: COLON CANCER
     Dosage: 290 MG CYCLICAL; CONCENTRATE FOR SOLUTION FOR INFUSION
     Route: 041
     Dates: start: 20121210, end: 20130731
  3. CALCIO FOLINATO [Concomitant]
     Indication: COLON CANCER
     Dates: start: 20121210, end: 20130731
  4. SOLOSA [Concomitant]
     Indication: DIABETES MELLITUS
     Dosage: 1 DOSAGE FORMS DAILY;
     Route: 048
  5. TORVAST [Concomitant]
     Indication: HYPERCHOLESTEROLAEMIA
     Dosage: 1 DOSAGE FORMS DAILY;
     Route: 048
  6. SELEDIE 11400 IU ANTIXA/0,6 ML [Concomitant]
     Indication: VENOUS THROMBOSIS LIMB
     Dosage: 1 DOSAGE FORMS DAILY;
     Route: 058
     Dates: start: 20130730, end: 20130810
  7. GASTROPROTECTIVE DRUG [Concomitant]
     Route: 048

REACTIONS (6)
  - Nausea [Not Recovered/Not Resolved]
  - Vomiting [Not Recovered/Not Resolved]
  - Diarrhoea [Not Recovered/Not Resolved]
  - Abdominal pain [Not Recovered/Not Resolved]
  - Dysphagia [Not Recovered/Not Resolved]
  - Oral pain [Not Recovered/Not Resolved]
